FAERS Safety Report 18507195 (Version 1)
Quarter: 2020Q4

REPORT INFORMATION
  Report Type: Spontaneous
  Country: US (occurrence: US)
  Receive Date: 20201113
  Receipt Date: 20201113
  Transmission Date: 20210114
  Serious: Yes (Death, Hospitalization)
  Sender: FDA-Public Use
  Company Number: None

PATIENT
  Sex: Male
  Weight: 56.8 kg

DRUGS (1)
  1. LENALIDOMIDE (CC-5013) (703813) [Suspect]
     Active Substance: LENALIDOMIDE

REACTIONS (14)
  - Disease progression [None]
  - Pneumonia [None]
  - Acute respiratory failure [None]
  - Pancytopenia [None]
  - Catheter site discharge [None]
  - Bone marrow myelogram abnormal [None]
  - Cardiac arrest [None]
  - Sepsis [None]
  - Febrile neutropenia [None]
  - Serratia bacteraemia [None]
  - Hyperkalaemia [None]
  - Infusion related reaction [None]
  - Candida test positive [None]
  - Bacterial test positive [None]

NARRATIVE: CASE EVENT DATE: 20201109
